FAERS Safety Report 5269122-X (Version None)
Quarter: 2007Q1

REPORT INFORMATION
  Report Type: 
  Country: None (occurrence: None)
  Receive Date: 20070314
  Receipt Date: 20070228
  Transmission Date: 20070707
  Serious: Yes (Hospitalization)
  Sender: FDA-Public Use
  Company Number: 200508IM000394

PATIENT
  Age: 59 Year
  Sex: Female
  Weight: 80.196 kg

DRUGS (5)
  1. INTERFERON GAMMA-1B [Suspect]
     Indication: IDIOPATHIC PULMONARY FIBROSIS
     Dosage: 200 UG, TIW, SUBCUTANEOUS
     Route: 058
     Dates: start: 20050405
  2. IBUPROFEN [Suspect]
     Dosage: 400 MG, PRN, ORAL
     Route: 048
     Dates: start: 20050405
  3. XANAX [Concomitant]
  4. AMBIEN [Concomitant]
  5. ZANTAC [Concomitant]

REACTIONS (3)
  - CONDITION AGGRAVATED [None]
  - GASTROOESOPHAGEAL REFLUX DISEASE [None]
  - HELICOBACTER INFECTION [None]
